FAERS Safety Report 7574173-6 (Version None)
Quarter: 2011Q2

REPORT INFORMATION
  Report Type: 
  Country: None (occurrence: None)
  Receive Date: 20110627
  Receipt Date: 20110617
  Transmission Date: 20111010
  Serious: Yes (Hospitalization)
  Sender: FDA-Public Use
  Company Number: DE-MILLENNIUM PHARMACEUTICALS, INC.-2010-05090

PATIENT

DRUGS (15)
  1. LACTULOSE [Concomitant]
     Indication: CONSTIPATION
     Dosage: 10 MG, UNK
     Route: 048
     Dates: start: 20100830, end: 20100830
  2. ASPIRIN [Concomitant]
     Indication: HYPERTENSIVE HEART DISEASE
     Dosage: 100 MG, QD
     Route: 048
     Dates: start: 20060101
  3. LEVOTHYROXINE SODIUM [Concomitant]
     Dosage: 50 MG, QD
     Route: 048
     Dates: start: 20051001
  4. METOCLOPRAMIDE [Concomitant]
     Dosage: 20 UNK, UNK
     Route: 048
     Dates: start: 20100810, end: 20100810
  5. DEXAMETHASONE [Suspect]
     Indication: MULTIPLE MYELOMA
     Dosage: 20 MG, UNK
     Route: 048
     Dates: start: 20100709, end: 20100828
  6. OPIPRAMOL [Concomitant]
     Dosage: 50 MG, QD
     Route: 048
     Dates: start: 20090301
  7. PANTOPRAZOLE [Concomitant]
     Indication: OESOPHAGITIS
     Dosage: 40 MG, QD
     Route: 048
     Dates: start: 20100810
  8. ACYCLOVIR [Concomitant]
     Dosage: 400 MG, TID
     Route: 048
     Dates: start: 20100720
  9. COTRIM FORTE EU RHO [Concomitant]
     Dosage: 960 MG, UNK
     Route: 048
     Dates: start: 20100724
  10. BISACODYL [Concomitant]
     Indication: CONSTIPATION
     Dosage: 5 MG, QD
     Route: 048
     Dates: start: 20100830, end: 20100830
  11. VELCADE [Suspect]
     Indication: MULTIPLE MYELOMA
     Dosage: 2.3 MG, UNK
     Route: 042
     Dates: start: 20100709, end: 20100827
  12. POLYETHYLENE GLYCOL [Concomitant]
     Indication: CONSTIPATION
     Dosage: UNK
     Route: 048
     Dates: start: 20100830
  13. CYCLOPHOSPHAMIDE [Suspect]
     Indication: MULTIPLE MYELOMA
     Dosage: 50 MG, UNK
     Route: 048
     Dates: start: 20100709, end: 20100719
  14. SIMVASTATIN [Concomitant]
     Indication: HYPERLIPIDAEMIA
     Dosage: 20 MG, QD
     Route: 048
     Dates: start: 20060101
  15. METOPROLOL TARTRATE [Concomitant]
     Indication: HYPERTENSION
     Dosage: 100 MG, BID
     Route: 048
     Dates: start: 20060901

REACTIONS (2)
  - POLYNEUROPATHY [None]
  - FATIGUE [None]
